FAERS Safety Report 24896985 (Version 1)
Quarter: 2025Q1

REPORT INFORMATION
  Report Type: Spontaneous
  Country: IT (occurrence: IT)
  Receive Date: 20250128
  Receipt Date: 20250128
  Transmission Date: 20250408
  Serious: Yes (Death)
  Sender: ABBVIE
  Company Number: None

PATIENT
  Age: 83 Year
  Sex: Male

DRUGS (1)
  1. IBRUTINIB [Suspect]
     Active Substance: IBRUTINIB
     Indication: Chronic lymphocytic leukaemia
     Dosage: IMBRUVICA 140 MG 1 CP DAY
     Route: 048
     Dates: start: 20240617, end: 20241031

REACTIONS (2)
  - Cognitive disorder [Fatal]
  - Seizure [Fatal]

NARRATIVE: CASE EVENT DATE: 20241115
